FAERS Safety Report 15640972 (Version 2)
Quarter: 2018Q4

REPORT INFORMATION
  Report Type: Spontaneous
  Country: US (occurrence: US)
  Receive Date: 20181120
  Receipt Date: 20181221
  Transmission Date: 20190205
  Serious: Yes (Hospitalization)
  Sender: FDA-Public Use
  Company Number: US-DENDREON PHARMACEUTICALS LLC-2018DEN000491

PATIENT

DRUGS (16)
  1. PROVENGE [Suspect]
     Active Substance: SIPULEUCEL-T
     Dosage: UNK
     Route: 042
  2. AMARYL [Concomitant]
     Active Substance: GLIMEPIRIDE
  3. NEURONTIN [Concomitant]
     Active Substance: GABAPENTIN
  4. PLAVIX [Concomitant]
     Active Substance: CLOPIDOGREL BISULFATE
  5. METFORMIN [Concomitant]
     Active Substance: METFORMIN HYDROCHLORIDE
  6. TOPROL XL [Concomitant]
     Active Substance: METOPROLOL SUCCINATE
  7. PROVENGE [Suspect]
     Active Substance: SIPULEUCEL-T
     Indication: PROSTATE CANCER
     Dosage: UNK
     Route: 042
  8. ZYTIGA [Concomitant]
     Active Substance: ABIRATERONE ACETATE
  9. FLOMAX [Concomitant]
     Active Substance: TAMSULOSIN HYDROCHLORIDE
  10. ASPIRIN                            /00002701/ [Concomitant]
     Active Substance: ASPIRIN
  11. PREDNISONE. [Concomitant]
     Active Substance: PREDNISONE
  12. ISORDIL [Concomitant]
     Active Substance: ISOSORBIDE DINITRATE
  13. PROVENGE [Suspect]
     Active Substance: SIPULEUCEL-T
     Dosage: UNK
     Route: 042
  14. SYNTHROID [Concomitant]
     Active Substance: LEVOTHYROXINE SODIUM
  15. ZOCOR [Concomitant]
     Active Substance: SIMVASTATIN
  16. COZAAR [Concomitant]
     Active Substance: LOSARTAN POTASSIUM

REACTIONS (1)
  - Sepsis [Recovering/Resolving]

NARRATIVE: CASE EVENT DATE: 20181112
